FAERS Safety Report 9017173 (Version 1)
Quarter: 2013Q1

REPORT INFORMATION
  Report Type: Report from Study
  Country: US (occurrence: US)
  Receive Date: 20130117
  Receipt Date: 20130117
  Transmission Date: 20140127
  Serious: Yes (Other)
  Sender: FDA-Public Use
  Company Number: US-ABBOTT-13P-163-1035044-00

PATIENT
  Age: 32 Year
  Sex: Male

DRUGS (1)
  1. HUMIRA [Suspect]
     Indication: CROHN^S DISEASE
     Dates: start: 201202, end: 201208

REACTIONS (5)
  - Hernia [Recovered/Resolved]
  - Hernia [Recovered/Resolved]
  - Hernia [Recovered/Resolved]
  - Arthralgia [Unknown]
  - Bone pain [Unknown]
